FAERS Safety Report 4930064-8 (Version None)
Quarter: 2006Q1

REPORT INFORMATION
  Report Type: 
  Country: None (occurrence: None)
  Receive Date: 20060228
  Receipt Date: 20040524
  Transmission Date: 20060701
  Serious: Yes (Hospitalization)
  Sender: FDA-Public Use
  Company Number: KARD2004-0001

PATIENT
  Age: 70 Year
  Sex: Male

DRUGS (4)
  1. CARBIDOPA AND LEVODOPA [Suspect]
     Dosage: 1200 MG
  2. LEVODOPA/BENSERAZIDE [Suspect]
     Dosage: 375 MG
  3. COMTESS [Suspect]
     Dosage: 1200 MG
  4. QUETIAPINE [Concomitant]

REACTIONS (1)
  - PSYCHOTIC DISORDER [None]
